FAERS Safety Report 10149314 (Version 1)
Quarter: 2014Q2

REPORT INFORMATION
  Report Type: Spontaneous
  Country: DE (occurrence: None)
  Receive Date: 20140430
  Receipt Date: 20140430
  Transmission Date: 20141212
  Serious: Yes (Death, Hospitalization)
  Sender: FDA-Public Use
  Company Number: FK201401491

PATIENT
  Age: 42 Year
  Sex: Female

DRUGS (5)
  1. METHOTREXATE (METHOTREXATE) [Suspect]
     Indication: SJOGREN^S SYNDROME
     Route: 048
     Dates: start: 2009, end: 2012
  2. CYCLOPHOSPHAMIDE (CYCLOPHOSPHAMIDE) [Suspect]
     Indication: SJOGREN^S SYNDROME
     Dosage: 13 CYCLES CUMULATIVE DOSE
     Dates: start: 2008, end: 2009
  3. AZATHIOPRINE (AZATHIOPRINE) [Suspect]
     Indication: SJOGREN^S SYNDROME
     Dates: start: 2008, end: 2012
  4. RITUXIMAB (RITUXIMAB) [Concomitant]
  5. IMMUNOGLOBULINS (IMMUNOGLOBULINS) [Concomitant]

REACTIONS (17)
  - Epstein-Barr virus infection [None]
  - Hypersensitivity vasculitis [None]
  - Diffuse large B-cell lymphoma [None]
  - Foot amputation [None]
  - Coagulopathy [None]
  - Hyperkalaemia [None]
  - Cardiac arrest [None]
  - Renal failure acute [None]
  - Pancytopenia [None]
  - Mucosal inflammation [None]
  - Acute hepatic failure [None]
  - Ascites [None]
  - Acute lung injury [None]
  - Pneumonitis [None]
  - Hepatosplenomegaly [None]
  - Lymphoproliferative disorder [None]
  - Hepatitis [None]
